FAERS Safety Report 4957936-2 (Version None)
Quarter: 2006Q1

REPORT INFORMATION
  Report Type: 
  Country: None (occurrence: None)
  Receive Date: 20060330
  Receipt Date: 20060321
  Transmission Date: 20060701
  Serious: Yes (Other)
  Sender: FDA-Public Use
  Company Number: PHNU2006DE01421

PATIENT
  Age: 64 Year
  Sex: Female

DRUGS (6)
  1. CO-DIOVAN [Suspect]
     Indication: HYPERTENSION
     Dates: start: 20041001
  2. BETA BLOCKING AGENTS [Concomitant]
  3. CARMEN [Concomitant]
  4. BISOHEXAL [Concomitant]
  5. MOXONIDINE [Concomitant]
  6. ACETYLSALICYLIC ACID SRT [Concomitant]
     Indication: COAGULOPATHY
     Dates: start: 20060301

REACTIONS (10)
  - ANGINA PECTORIS [None]
  - ANXIETY [None]
  - BLOOD PRESSURE INADEQUATELY CONTROLLED [None]
  - EPISTAXIS [None]
  - GENITAL BURNING SENSATION [None]
  - HAEMATOCHEZIA [None]
  - HAEMOPTYSIS [None]
  - HAEMORRHOIDS [None]
  - HYPERTENSIVE CRISIS [None]
  - RHINITIS [None]
